FAERS Safety Report 20327195 (Version 1)
Quarter: 2022Q1

REPORT INFORMATION
  Report Type: Spontaneous
  Country: US (occurrence: US)
  Receive Date: 20220112
  Receipt Date: 20220112
  Transmission Date: 20220424
  Serious: Yes (Other)
  Sender: FDA-Public Use
  Company Number: US-MYLANLABS-2022M1002289

PATIENT
  Age: 34 Year
  Sex: Male

DRUGS (25)
  1. IFOSFAMIDE [Suspect]
     Active Substance: IFOSFAMIDE
     Indication: Plasmablastic lymphoma
     Dosage: UNK
     Route: 065
  2. IFOSFAMIDE [Suspect]
     Active Substance: IFOSFAMIDE
     Indication: Anogenital warts
  3. IFOSFAMIDE [Suspect]
     Active Substance: IFOSFAMIDE
     Indication: Metastases to central nervous system
  4. IFOSFAMIDE [Suspect]
     Active Substance: IFOSFAMIDE
     Indication: Metastases to kidney
  5. CARBOPLATIN [Suspect]
     Active Substance: CARBOPLATIN
     Indication: Plasmablastic lymphoma
     Dosage: MULTIPLE DOSES
     Route: 065
  6. CARBOPLATIN [Suspect]
     Active Substance: CARBOPLATIN
     Indication: Anogenital warts
  7. CARBOPLATIN [Suspect]
     Active Substance: CARBOPLATIN
     Indication: Metastases to central nervous system
  8. CARBOPLATIN [Suspect]
     Active Substance: CARBOPLATIN
     Indication: Metastases to kidney
  9. ETOPOSIDE [Suspect]
     Active Substance: ETOPOSIDE
     Indication: Plasmablastic lymphoma
     Dosage: MULTIPLE DOSES
     Route: 065
  10. ETOPOSIDE [Suspect]
     Active Substance: ETOPOSIDE
     Indication: Anogenital warts
  11. ETOPOSIDE [Suspect]
     Active Substance: ETOPOSIDE
     Indication: Metastases to central nervous system
  12. ETOPOSIDE [Suspect]
     Active Substance: ETOPOSIDE
     Indication: Metastases to kidney
  13. METHOTREXATE [Suspect]
     Active Substance: METHOTREXATE
     Indication: Plasmablastic lymphoma
     Dosage: UNK
     Route: 065
  14. METHOTREXATE [Suspect]
     Active Substance: METHOTREXATE
     Indication: Anogenital warts
  15. METHOTREXATE [Suspect]
     Active Substance: METHOTREXATE
     Indication: Metastases to central nervous system
  16. METHOTREXATE [Suspect]
     Active Substance: METHOTREXATE
     Indication: Metastases to kidney
  17. CYTARABINE [Suspect]
     Active Substance: CYTARABINE
     Indication: Plasmablastic lymphoma
     Dosage: UNK
     Route: 065
  18. CYTARABINE [Suspect]
     Active Substance: CYTARABINE
     Indication: Anogenital warts
  19. CYTARABINE [Suspect]
     Active Substance: CYTARABINE
     Indication: Metastases to central nervous system
  20. CYTARABINE [Suspect]
     Active Substance: CYTARABINE
     Indication: Metastases to kidney
  21. BORTEZOMIB [Suspect]
     Active Substance: BORTEZOMIB
     Indication: Plasmablastic lymphoma
     Dosage: UNK
     Route: 065
  22. BORTEZOMIB [Suspect]
     Active Substance: BORTEZOMIB
     Indication: Metastases to central nervous system
  23. BORTEZOMIB [Suspect]
     Active Substance: BORTEZOMIB
     Indication: Metastases to kidney
  24. BORTEZOMIB [Suspect]
     Active Substance: BORTEZOMIB
     Indication: Anogenital warts
  25. BICTEGRAVIR;EMTRICITABINE;TENOFOVIR ALAFENAMIDE FUMARATE [Concomitant]
     Indication: HIV infection
     Dosage: UNK
     Route: 065
     Dates: start: 202006

REACTIONS (3)
  - Neutropenia [Unknown]
  - Tumour lysis syndrome [Unknown]
  - Mucosal inflammation [Unknown]
